FAERS Safety Report 6536960-2 (Version None)
Quarter: 2010Q1

REPORT INFORMATION
  Report Type: 
  Country: None (occurrence: None)
  Receive Date: 20100105
  Receipt Date: 20091224
  Transmission Date: 20100710
  Serious: Yes (Other)
  Sender: FDA-Public Use
  Company Number: AE-2009-339

PATIENT
  Age: 18 Year
  Sex: Male

DRUGS (3)
  1. FUROSEMIDE [Suspect]
     Dosage: 40MG, THRICE/WEEK, ORAL
     Route: 048
  2. DECADUROBOLIN [Suspect]
     Dosage: QD, ORAL
     Route: 048
  3. STANOZOLOL [Suspect]
     Dosage: 5MG THREE TIMES PER WEEK

REACTIONS (1)
  - RETINAL VEIN OCCLUSION [None]
